FAERS Safety Report 20004311 (Version 2)
Quarter: 2021Q4

REPORT INFORMATION
  Report Type: Spontaneous
  Country: AU (occurrence: AU)
  Receive Date: 20211028
  Receipt Date: 20211028
  Transmission Date: 20220303
  Serious: Yes (Hospitalization)
  Sender: FDA-Public Use
  Company Number: 2021A779627

PATIENT
  Age: 867 Month
  Sex: Male

DRUGS (15)
  1. BENRALIZUMAB [Suspect]
     Active Substance: BENRALIZUMAB
     Indication: Asthma
     Route: 058
     Dates: start: 20180112
  2. BUDESONIDE [Suspect]
     Active Substance: BUDESONIDE
     Dosage: 1MG DAILY PRN
     Route: 055
  3. CICLESONIDE [Suspect]
     Active Substance: CICLESONIDE
     Dosage: (160) TWO PUFFS MANE +/- 2 PUFFS NOCTE
     Route: 055
  4. ROSUVASTATIN [Suspect]
     Active Substance: ROSUVASTATIN
     Route: 048
  5. ESOMEPRAZOLE. [Suspect]
     Active Substance: ESOMEPRAZOLE MAGNESIUM
     Route: 048
  6. TIOTROPIUM [Suspect]
     Active Substance: TIOTROPIUM
     Dosage: (2.5) TWO PUFFS MANE
     Route: 065
  7. INDACATEROL [Suspect]
     Active Substance: INDACATEROL
     Dosage: (150-300) ONE PUFF MANE
     Route: 065
  8. IRBESARTAN [Suspect]
     Active Substance: IRBESARTAN
     Route: 065
  9. CALCIUM LACTATE\DEXTROSE\POTASSIUM CHLORIDE\SODIUM BICARBONATE\SODIUM [Suspect]
     Active Substance: CALCIUM LACTATE\DEXTROSE\POTASSIUM CHLORIDE\SODIUM BICARBONATE\SODIUM CHLORIDE
     Route: 065
  10. ASPIRIN [Suspect]
     Active Substance: ASPIRIN
     Route: 065
  11. THEOPHYLLINE ANHYDROUS [Suspect]
     Active Substance: THEOPHYLLINE ANHYDROUS
     Route: 065
  12. CARFILZOMIB [Suspect]
     Active Substance: CARFILZOMIB
     Route: 065
  13. FLUCONAZOLE [Suspect]
     Active Substance: FLUCONAZOLE
     Route: 065
  14. BACTRIM [Suspect]
     Active Substance: SULFAMETHOXAZOLE\TRIMETHOPRIM
     Dosage: 2 TABLES TWICE A WEEK
     Route: 065
  15. DEXAMETHASONE [Suspect]
     Active Substance: DEXAMETHASONE

REACTIONS (3)
  - Rhinovirus infection [Unknown]
  - Influenza [Recovered/Resolved]
  - Pseudomonas infection [Unknown]

NARRATIVE: CASE EVENT DATE: 20190101
